FAERS Safety Report 18112920 (Version 1)
Quarter: 2020Q3

REPORT INFORMATION
  Report Type: Spontaneous
  Country: US (occurrence: US)
  Receive Date: 20200805
  Receipt Date: 20200805
  Transmission Date: 20201103
  Serious: Yes (Other)
  Sender: FDA-Public Use
  Company Number: None

PATIENT
  Age: 59 Year
  Sex: Female
  Weight: 67.5 kg

DRUGS (2)
  1. LISINOPRIL. [Concomitant]
     Active Substance: LISINOPRIL
  2. DERMASIL [Suspect]
     Active Substance: DIMETHICONE

REACTIONS (4)
  - Dry skin [None]
  - Rash pruritic [None]
  - Rash maculo-papular [None]
  - Skin lesion [None]

NARRATIVE: CASE EVENT DATE: 20200501
